FAERS Safety Report 8143281-3 (Version None)
Quarter: 2012Q1

REPORT INFORMATION
  Report Type: 
  Country: None (occurrence: None)
  Receive Date: 20120217
  Receipt Date: 20120210
  Transmission Date: 20120608
  Serious: Yes (Other)
  Sender: FDA-Public Use
  Company Number: US-BAYER-2011-107948

PATIENT
  Age: 15 Year
  Sex: Female
  Weight: 59.41 kg

DRUGS (5)
  1. PRILOSEC [Concomitant]
     Dosage: UNK
     Dates: start: 20090101
  2. YAZ [Suspect]
     Indication: MENORRHAGIA
     Dosage: UNK
     Dates: start: 20081001, end: 20081201
  3. BENTYL [Concomitant]
     Dosage: UNK
     Dates: start: 20090101
  4. REGLAN [Concomitant]
     Dosage: UNK
     Dates: start: 20090101
  5. LUPRON [Concomitant]

REACTIONS (10)
  - ABDOMINAL PAIN UPPER [None]
  - DIARRHOEA [None]
  - CHOLECYSTITIS CHRONIC [None]
  - GASTROOESOPHAGEAL REFLUX DISEASE [None]
  - HAEMATOMA [None]
  - INJURY [None]
  - NAUSEA [None]
  - IRRITABLE BOWEL SYNDROME [None]
  - PAIN [None]
  - ANHEDONIA [None]
